FAERS Safety Report 10175781 (Version 2)
Quarter: 2015Q1

REPORT INFORMATION
  Report Type: Report from Study
  Country: CL (occurrence: CL)
  Receive Date: 20140516
  Receipt Date: 20150323
  Transmission Date: 20150720
  Serious: Yes (Other)
  Sender: FDA-Public Use
  Company Number: CL-ROCHE-1402551

PATIENT
  Age: 60 Year
  Sex: Male
  Weight: 79 kg

DRUGS (4)
  1. PEGASYS [Suspect]
     Active Substance: PEGINTERFERON ALFA-2A
     Route: 058
     Dates: start: 20140905, end: 20150316
  2. REBETOL [Suspect]
     Active Substance: RIBAVIRIN
     Indication: HEPATITIS C
     Route: 048
     Dates: start: 20140305, end: 20150316
  3. PEGASYS [Suspect]
     Active Substance: PEGINTERFERON ALFA-2A
     Indication: HEPATITIS C
     Route: 058
     Dates: start: 20130621, end: 20140429
  4. TELAPREVIR [Suspect]
     Active Substance: TELAPREVIR
     Indication: HEPATITIS C
     Route: 048
     Dates: start: 20140905, end: 20150316

REACTIONS (7)
  - Viral load increased [Not Recovered/Not Resolved]
  - Platelet count decreased [Unknown]
  - Mood altered [Unknown]
  - Drug ineffective [Unknown]
  - Blood test abnormal [Not Recovered/Not Resolved]
  - Viral load increased [Unknown]
  - Listless [Unknown]

NARRATIVE: CASE EVENT DATE: 20140429
